FAERS Safety Report 6914726-9 (Version None)
Quarter: 2010Q3

REPORT INFORMATION
  Report Type: 
  Country: None (occurrence: None)
  Receive Date: 20100809
  Receipt Date: 20100802
  Transmission Date: 20110219
  Serious: Yes (Other)
  Sender: FDA-Public Use
  Company Number: US-SANOFI-AVENTIS-2010SA046213

PATIENT
  Age: 52 Year
  Sex: Male

DRUGS (2)
  1. LANTUS [Suspect]
     Indication: TYPE 2 DIABETES MELLITUS
     Dosage: DOSE:30 UNIT(S)
     Route: 058
     Dates: start: 20090101
  2. OPTICLICK [Suspect]
     Dates: start: 20090101

REACTIONS (3)
  - FALL [None]
  - HEAD INJURY [None]
  - TRAUMATIC BRAIN INJURY [None]
